FAERS Safety Report 5698812-X (Version None)
Quarter: 2008Q2

REPORT INFORMATION
  Report Type: 
  Country: None (occurrence: None)
  Receive Date: 20080403
  Receipt Date: 20080327
  Transmission Date: 20081010
  Serious: Yes (Hospitalization)
  Sender: FDA-Public Use
  Company Number: 083-C5013-08031821

PATIENT
  Age: 84 Year
  Sex: Male
  Weight: 60 kg

DRUGS (3)
  1. CC-5013  (LENALIDOMIDE) (CAPSULES) [Suspect]
     Indication: MULTIPLE MYELOMA
     Dosage: 25 MG,  DAILY, ORAL; 15 MG, DAILY, ORAL
     Route: 048
     Dates: start: 20071024, end: 20080212
  2. CC-5013  (LENALIDOMIDE) (CAPSULES) [Suspect]
     Indication: MULTIPLE MYELOMA
     Dosage: 25 MG,  DAILY, ORAL; 15 MG, DAILY, ORAL
     Route: 048
     Dates: start: 20080313
  3. DEXAMETHASONE TAB [Concomitant]

REACTIONS (1)
  - COLON CANCER [None]
